FAERS Safety Report 15505826 (Version 2)
Quarter: 2019Q1

REPORT INFORMATION
  Report Type: Spontaneous
  Country: US (occurrence: US)
  Receive Date: 20181016
  Receipt Date: 20190329
  Transmission Date: 20190417
  Serious: No
  Sender: FDA-Public Use
  Company Number: US-PFIZER INC-2018403631

PATIENT
  Age: 47 Year
  Sex: Female
  Weight: 70.31 kg

DRUGS (2)
  1. PREMARIN [Suspect]
     Active Substance: ESTROGENS, CONJUGATED
     Dosage: UNK, 2X/WEEK
     Route: 067
     Dates: start: 20181002
  2. PREMARIN [Suspect]
     Active Substance: ESTROGENS, CONJUGATED
     Indication: VULVOVAGINAL DRYNESS
     Dosage: 1 G, THREE TIMES A WEEK (MONDAY, WEDNESDAY, FRIDAY)
     Route: 067
     Dates: start: 201804

REACTIONS (4)
  - Headache [Recovered/Resolved]
  - Product use issue [Unknown]
  - Insomnia [Recovered/Resolved]
  - Nightmare [Recovered/Resolved]

NARRATIVE: CASE EVENT DATE: 2018
